FAERS Safety Report 9376136 (Version 2)
Quarter: 2013Q4

REPORT INFORMATION
  Report Type: Spontaneous
  Country: GB (occurrence: GB)
  Receive Date: 20130630
  Receipt Date: 20131105
  Transmission Date: 20140711
  Serious: Yes (Other)
  Sender: FDA-Public Use
  Company Number: GB-TEVA-414420ISR

PATIENT
  Age: 62 Year
  Sex: Female
  Weight: 50 kg

DRUGS (10)
  1. SIMVASTATIN [Suspect]
     Dosage: 80 MILLIGRAM DAILY; AT NIGHT -  ONGOING. STARTED APPROXIMATELY 7 YEARS AGO.
  2. AMLODIPINE [Interacting]
     Dosage: 5 MILLIGRAM DAILY;
  3. CLONAZEPAM [Concomitant]
  4. COD LIVER OIL [Concomitant]
  5. EVENING PRIMROSE [Concomitant]
  6. EZETIMIBE [Concomitant]
  7. REMEDEINE [Concomitant]
     Dosage: 30/500
  8. VITAMINS NOS [Concomitant]
  9. ERGOCALCIFEROL [Concomitant]
  10. CALCIUM [Concomitant]

REACTIONS (3)
  - Peroneal nerve palsy [Not Recovered/Not Resolved]
  - Fall [Not Recovered/Not Resolved]
  - Drug interaction [Unknown]
